FAERS Safety Report 9157686 (Version 1)
Quarter: 2013Q1

REPORT INFORMATION
  Report Type: Spontaneous
  Country: IT (occurrence: IT)
  Receive Date: 20130312
  Receipt Date: 20130312
  Transmission Date: 20140127
  Serious: Yes (Hospitalization)
  Sender: FDA-Public Use
  Company Number: PHHY2013IT022738

PATIENT
  Age: 64 Year
  Sex: Male

DRUGS (14)
  1. ENALAPRIL [Suspect]
     Dosage: 1.25 MG, DAILY
     Route: 048
     Dates: start: 20130109, end: 20130116
  2. LASIX [Suspect]
     Dosage: 125 MG, DAILY
     Route: 048
     Dates: start: 20050101, end: 20130116
  3. ZAROXOLYN [Suspect]
     Dosage: 1.25 MG, DAILY
     Route: 048
     Dates: start: 20130109, end: 20130116
  4. LANOXIN [Suspect]
     Dosage: 125 UG, DAILY
     Route: 048
     Dates: start: 20130109, end: 20130116
  5. KCL RETARD [Concomitant]
     Indication: HYPOKALAEMIA
     Dates: start: 20121108, end: 20130116
  6. CARDIOASPIRIN [Concomitant]
  7. KEPPRA [Concomitant]
  8. XANAX [Concomitant]
  9. COUMADIN [Concomitant]
  10. ATORVASTATIN [Concomitant]
  11. BISOPROLOL [Concomitant]
  12. NITROGLYCERINE [Concomitant]
  13. POTASSIUM [Concomitant]
  14. TIOTROPIUM [Concomitant]

REACTIONS (9)
  - Dehydration [Recovered/Resolved]
  - Haemoconcentration [Recovered/Resolved]
  - Cardioactive drug level increased [Recovered/Resolved]
  - Decreased appetite [Recovered/Resolved]
  - Asthenia [Recovered/Resolved]
  - Dyspnoea [Recovered/Resolved]
  - Vomiting [Recovered/Resolved]
  - Hyponatraemia [Recovered/Resolved]
  - Hypotension [Recovered/Resolved]
